FAERS Safety Report 13395738 (Version 1)
Quarter: 2017Q2

REPORT INFORMATION
  Report Type: Spontaneous
  Country: US (occurrence: US)
  Receive Date: 20170402
  Receipt Date: 20170402
  Transmission Date: 20170830
  Serious: Yes (Life-Threatening, Hospitalization, Disabling)
  Sender: FDA-Public Use
  Company Number: None

PATIENT
  Age: 59 Year
  Sex: Male
  Weight: 146.2 kg

DRUGS (13)
  1. INFLIXIMAB [Suspect]
     Active Substance: INFLIXIMAB
     Indication: CROHN^S DISEASE
     Dosage: ?          OTHER FREQUENCY:8 WEEKS;?
     Route: 042
     Dates: start: 20091111, end: 20160112
  2. AMLODIPINE [Concomitant]
     Active Substance: AMLODIPINE BESYLATE
  3. TAMSULOSIN [Concomitant]
     Active Substance: TAMSULOSIN
  4. TESTOSTERONE. [Concomitant]
     Active Substance: TESTOSTERONE
  5. SERTRALINE [Concomitant]
     Active Substance: SERTRALINE HYDROCHLORIDE
  6. BABY ASPIRIN [Concomitant]
     Active Substance: ASPIRIN
  7. CARVEDILOL. [Concomitant]
     Active Substance: CARVEDILOL
  8. VITAMIN D [Concomitant]
     Active Substance: CHOLECALCIFEROL
  9. LORATIDINE [Concomitant]
     Active Substance: LORATADINE
  10. LISINOPRIL. [Concomitant]
     Active Substance: LISINOPRIL
  11. LEVEMIR [Concomitant]
     Active Substance: INSULIN DETEMIR
  12. NOVOLOG [Concomitant]
     Active Substance: INSULIN ASPART
  13. SIMVASTATIN. [Concomitant]
     Active Substance: SIMVASTATIN

REACTIONS (2)
  - Extradural abscess [None]
  - Immune system disorder [None]

NARRATIVE: CASE EVENT DATE: 20160208
